FAERS Safety Report 4931188-1 (Version None)
Quarter: 2006Q1

REPORT INFORMATION
  Report Type: 
  Country: None (occurrence: None)
  Receive Date: 20060302
  Receipt Date: 20060221
  Transmission Date: 20060701
  Serious: Yes (Hospitalization, Other)
  Sender: FDA-Public Use
  Company Number: US-MERCK-0602USA05374

PATIENT
  Age: 67 Year
  Sex: Female
  Weight: 82 kg

DRUGS (1)
  1. VIOXX [Suspect]
     Indication: ARTHRITIS
     Route: 048
     Dates: start: 19990101, end: 20000701

REACTIONS (5)
  - ARTHROPATHY [None]
  - CEREBROVASCULAR ACCIDENT [None]
  - CONVULSION [None]
  - GALLBLADDER DISORDER [None]
  - LACUNAR INFARCTION [None]
